FAERS Safety Report 16363134 (Version 2)
Quarter: 2019Q2

REPORT INFORMATION
  Report Type: Report from Study
  Country: IE (occurrence: IE)
  Receive Date: 20190528
  Receipt Date: 20190603
  Transmission Date: 20190711
  Serious: Yes (Hospitalization, Other)
  Sender: FDA-Public Use
  Company Number: IE-JNJFOC-20190533418

PATIENT
  Sex: Male

DRUGS (4)
  1. STELARA [Suspect]
     Active Substance: USTEKINUMAB
     Indication: PSORIASIS
     Route: 058
     Dates: start: 20181023
  2. BISOPROLOL [Concomitant]
     Active Substance: BISOPROLOL
     Route: 050
  3. RAMILO [Concomitant]
     Active Substance: RAMIPRIL
     Route: 050
  4. LIXIANA [Concomitant]
     Active Substance: EDOXABAN TOSYLATE
     Route: 050

REACTIONS (2)
  - Cerebrovascular accident [Unknown]
  - Lower respiratory tract infection [Recovered/Resolved]

NARRATIVE: CASE EVENT DATE: 2019
